FAERS Safety Report 14788045 (Version 1)
Quarter: 2018Q2

REPORT INFORMATION
  Report Type: Spontaneous
  Country: IR (occurrence: IR)
  Receive Date: 20180422
  Receipt Date: 20180422
  Transmission Date: 20180711
  Serious: Yes (Other)
  Sender: FDA-Public Use
  Company Number: IR-APOPHARMA-2018AP010468

PATIENT
  Age: 23 Year
  Sex: Male

DRUGS (1)
  1. FERRIPROX [Suspect]
     Active Substance: DEFERIPRONE
     Indication: NEURODEGENERATIVE DISORDER
     Dosage: 30 MG/KG, UNK
     Route: 048

REACTIONS (1)
  - Condition aggravated [Unknown]
